FAERS Safety Report 24319275 (Version 1)
Quarter: 2024Q3

REPORT INFORMATION
  Report Type: Report from Study
  Country: MX (occurrence: MX)
  Receive Date: 20240914
  Receipt Date: 20240914
  Transmission Date: 20241016
  Serious: Yes (Death, Other)
  Sender: ABBVIE
  Company Number: MX-ABBVIE-5921837

PATIENT
  Sex: Female

DRUGS (1)
  1. VENCLEXTA [Suspect]
     Active Substance: VENETOCLAX
     Indication: Chronic lymphocytic leukaemia
     Dosage: STRENGTH: 100 MILLIGRAM
     Route: 048
     Dates: start: 20230708

REACTIONS (4)
  - Sepsis [Fatal]
  - Localised infection [Unknown]
  - Leukaemia [Unknown]
  - Illness [Unknown]
